FAERS Safety Report 18185116 (Version 4)
Quarter: 2021Q2

REPORT INFORMATION
  Report Type: Spontaneous
  Country: BR (occurrence: BR)
  Receive Date: 20200824
  Receipt Date: 20210609
  Transmission Date: 20210717
  Serious: Yes (Hospitalization, Other)
  Sender: FDA-Public Use
  Company Number: BR-GLAXOSMITHKLINE-BR2019AMR230472

PATIENT
  Sex: Female
  Weight: 114 kg

DRUGS (4)
  1. BENLYSTA [Suspect]
     Active Substance: BELIMUMAB
     Dosage: UNK, Z, 1 AMPOULE OF 400MG AND 5 AMPOULES OF 120MG
  2. BENLYSTA [Suspect]
     Active Substance: BELIMUMAB
     Indication: SYSTEMIC LUPUS ERYTHEMATOSUS
     Dosage: UNK, Z, 1 AMPOULE OF 400MG AND 4 AMPOULES OF 120MG
     Dates: start: 20181226
  3. BENLYSTA [Suspect]
     Active Substance: BELIMUMAB
     Dosage: UNK
  4. TRAMAL [Concomitant]
     Active Substance: TRAMADOL
     Indication: ARTHRALGIA
     Dosage: 1 DF, BID

REACTIONS (7)
  - Arthralgia [Recovered/Resolved]
  - Gait inability [Recovered/Resolved]
  - Social problem [Unknown]
  - Systemic lupus erythematosus [Unknown]
  - Muscle atrophy [Recovered/Resolved]
  - Malaise [Unknown]
  - Incorrect product administration duration [Unknown]
